FAERS Safety Report 5549172-6 (Version None)
Quarter: 2007Q4

REPORT INFORMATION
  Report Type: 
  Country: None (occurrence: None)
  Receive Date: 20071211
  Receipt Date: 20070417
  Transmission Date: 20080405
  Serious: No
  Sender: FDA-Public Use
  Company Number: US-AMGEN-KDL220282

PATIENT
  Sex: Female

DRUGS (2)
  1. ENBREL [Suspect]
     Indication: PSORIATIC ARTHROPATHY
     Route: 058
     Dates: start: 20060420
  2. ENBREL [Suspect]
     Indication: PSORIASIS

REACTIONS (2)
  - PSORIATIC ARTHROPATHY [None]
  - THERAPEUTIC RESPONSE DECREASED [None]
